FAERS Safety Report 4346994-4 (Version None)
Quarter: 2004Q1

REPORT INFORMATION
  Report Type: 
  Country: None (occurrence: None)
  Receive Date: 20040325
  Receipt Date: 20040130
  Transmission Date: 20041129
  Serious: No
  Sender: FDA-Public Use
  Company Number: USA040258099

PATIENT
  Age: 69 Year
  Sex: Female

DRUGS (6)
  1. FORTEO [Suspect]
     Indication: OSTEOPOROSIS
     Dates: start: 20040101
  2. LEVOXYL [Concomitant]
  3. ACCUPRIL [Concomitant]
  4. CLARINEX [Concomitant]
  5. MULTIVITAMIN [Concomitant]
  6. CALCIUM AND VITAMIN D [Concomitant]

REACTIONS (3)
  - ANXIETY [None]
  - DIZZINESS [None]
  - NAUSEA [None]
